FAERS Safety Report 5035741-9 (Version None)
Quarter: 2006Q2

REPORT INFORMATION
  Report Type: 
  Country: None (occurrence: None)
  Receive Date: 20060627
  Receipt Date: 20060224
  Transmission Date: 20061013
  Serious: Yes (Disabling)
  Sender: FDA-Public Use
  Company Number: US-BRISTOL-MYERS SQUIBB COMPANY-13296835

PATIENT
  Age: 54 Year
  Sex: Female

DRUGS (2)
  1. ERBITUX [Suspect]
     Indication: COLORECTAL CANCER
     Dosage: CETUXIMAB IS NOW ^ON HOLD.^
     Route: 042
     Dates: start: 20060222
  2. CPT-11 [Concomitant]
     Dates: start: 20060222

REACTIONS (2)
  - DEAFNESS BILATERAL [None]
  - IMMUNE SYSTEM DISORDER [None]
